FAERS Safety Report 15781180 (Version 4)
Quarter: 2021Q1

REPORT INFORMATION
  Report Type: Spontaneous
  Country: US (occurrence: US)
  Receive Date: 20190102
  Receipt Date: 20210304
  Transmission Date: 20210419
  Serious: Yes (Other)
  Sender: FDA-Public Use
  Company Number: US-SA-2018SA396548

PATIENT
  Age: 59 Year
  Sex: Female

DRUGS (2)
  1. AUBAGIO [Suspect]
     Active Substance: TERIFLUNOMIDE
     Dosage: 14 MG, QD
     Route: 048
  2. AUBAGIO [Suspect]
     Active Substance: TERIFLUNOMIDE
     Indication: MULTIPLE SCLEROSIS
     Dosage: 14 MG, QD
     Route: 048
     Dates: start: 20170726

REACTIONS (5)
  - Liver disorder [Unknown]
  - Appendicitis [Unknown]
  - Drug ineffective [Unknown]
  - Product dose omission issue [Unknown]
  - Renal disorder [Unknown]

NARRATIVE: CASE EVENT DATE: 2018
